FAERS Safety Report 6804908-9 (Version None)
Quarter: 2010Q2

REPORT INFORMATION
  Report Type: 
  Country: None (occurrence: None)
  Receive Date: 20100628
  Receipt Date: 20070709
  Transmission Date: 20101027
  Serious: No
  Sender: FDA-Public Use
  Company Number: US-PFIZER INC-2007047055

PATIENT
  Age: 85 Year
  Sex: Female
  Weight: 53.181 kg

DRUGS (5)
  1. XALATAN [Suspect]
     Indication: GLAUCOMA
     Dates: start: 20070401
  2. POTASSIUM [Concomitant]
  3. FUROSEMIDE [Concomitant]
  4. ACETYLSALICYLIC ACID [Concomitant]
  5. LIPITOR [Concomitant]

REACTIONS (2)
  - CRYING [None]
  - EYE PAIN [None]
